FAERS Safety Report 18922427 (Version 5)
Quarter: 2021Q4

REPORT INFORMATION
  Report Type: Report from Study
  Country: US (occurrence: US)
  Receive Date: 20210222
  Receipt Date: 20211209
  Transmission Date: 20220304
  Serious: Yes (Other)
  Sender: FDA-Public Use
  Company Number: US-NOVARTISPH-NVSC2021US031703

PATIENT
  Age: 46 Year
  Sex: Male

DRUGS (5)
  1. ENTRESTO [Suspect]
     Active Substance: SACUBITRIL\VALSARTAN
     Indication: Cardiac failure
     Dosage: 200 MG (97/103 MG), BID
     Route: 048
  2. ENTRESTO [Suspect]
     Active Substance: SACUBITRIL\VALSARTAN
     Dosage: 97 MG, BID
     Route: 048
  3. XARELTO [Suspect]
     Active Substance: RIVAROXABAN
     Indication: Product used for unknown indication
     Dosage: UNK
     Route: 065
  4. ASPIRIN [Suspect]
     Active Substance: ASPIRIN
     Indication: Product used for unknown indication
     Dosage: UNK
     Route: 065
  5. UNSPECIFIED INGREDIENT [Suspect]
     Active Substance: UNSPECIFIED INGREDIENT
     Indication: Product used for unknown indication
     Dosage: UNK, UNKNOWN
     Route: 065

REACTIONS (17)
  - Cardiac failure congestive [Unknown]
  - Rectal haemorrhage [Unknown]
  - Rheumatoid arthritis [Unknown]
  - Overweight [Unknown]
  - Blood pressure systolic increased [Unknown]
  - COVID-19 [Unknown]
  - Productive cough [Unknown]
  - Hypersensitivity [Unknown]
  - Stress [Unknown]
  - Anxiety [Unknown]
  - Blood glucose decreased [Unknown]
  - Memory impairment [Unknown]
  - Arthralgia [Unknown]
  - Blood pressure decreased [Unknown]
  - Pollakiuria [Unknown]
  - Heart rate abnormal [Unknown]
  - Cardiac disorder [Unknown]
